FAERS Safety Report 6392054-0 (Version None)
Quarter: 2009Q4

REPORT INFORMATION
  Report Type: 
  Country: None (occurrence: None)
  Receive Date: 20091007
  Receipt Date: 20090930
  Transmission Date: 20100525
  Serious: No
  Sender: FDA-Public Use
  Company Number: US-B.I. PHARMACEUTICALS,INC./RIDGEFIELD-2009-BP-10716BP

PATIENT
  Sex: Male

DRUGS (6)
  1. ATROVENT HFA [Suspect]
     Indication: INCREASED UPPER AIRWAY SECRETION
     Route: 055
     Dates: start: 20090807, end: 20090810
  2. ATROVENT HFA [Suspect]
     Indication: DYSPNOEA
  3. ZOCOR [Concomitant]
     Indication: BLOOD CHOLESTEROL INCREASED
     Dates: start: 20030101
  4. LEVOTHYROXINE SODIUM [Concomitant]
     Indication: BLOOD TRIGLYCERIDES INCREASED
     Dosage: 50 MCG
     Dates: start: 20030101
  5. FINASTERIDE [Concomitant]
  6. ALBUTEROL [Concomitant]

REACTIONS (6)
  - BACK PAIN [None]
  - CHILLS [None]
  - HYPOAESTHESIA [None]
  - INCREASED UPPER AIRWAY SECRETION [None]
  - MUSCULOSKELETAL PAIN [None]
  - VISION BLURRED [None]
